FAERS Safety Report 5243308-2 (Version None)
Quarter: 2007Q1

REPORT INFORMATION
  Report Type: 
  Country: None (occurrence: None)
  Receive Date: 20070215
  Receipt Date: 20070131
  Transmission Date: 20070707
  Serious: Yes (Other)
  Sender: FDA-Public Use
  Company Number: ACO_0317_2007

PATIENT
  Sex: Male

DRUGS (4)
  1. SIRDALUD [Suspect]
     Dosage: VAR 4- 6X/DAY PO
     Route: 048
  2. ALCOHOL [Suspect]
     Dosage: DF
  3. HEROIN [Suspect]
     Dosage: DF
  4. METHADONE HCL [Concomitant]

REACTIONS (1)
  - DRUG ABUSER [None]
